FAERS Safety Report 9359838 (Version 2)
Quarter: 2013Q3

REPORT INFORMATION
  Report Type: Spontaneous
  Country: FR (occurrence: FR)
  Receive Date: 20130621
  Receipt Date: 20130704
  Transmission Date: 20140515
  Serious: Yes (Hospitalization, Other)
  Sender: FDA-Public Use
  Company Number: FR-ROCHE-1239471

PATIENT
  Age: 70 Year
  Sex: Male

DRUGS (1)
  1. ZELBORAF [Suspect]
     Indication: METASTATIC MALIGNANT MELANOMA
     Dosage: 1DF = 240MG
     Route: 048
     Dates: start: 20130614, end: 20130614

REACTIONS (3)
  - Visual impairment [Unknown]
  - Blindness [Recovering/Resolving]
  - Lip swelling [Unknown]
